FAERS Safety Report 5073419-6 (Version None)
Quarter: 2006Q3

REPORT INFORMATION
  Report Type: 
  Country: None (occurrence: None)
  Receive Date: 20060802
  Receipt Date: 20060726
  Transmission Date: 20061208
  Serious: Yes (Hospitalization)
  Sender: FDA-Public Use
  Company Number: 2006-07-0534

PATIENT
  Age: 58 Year
  Sex: Female
  Weight: 91.6266 kg

DRUGS (4)
  1. TEMODAR [Suspect]
     Indication: ASTROCYTOMA
     Dosage: 145 MG QD ORAL
     Route: 048
     Dates: start: 20060505, end: 20060621
  2. PEPCID [Concomitant]
  3. SENOKOT [Concomitant]
  4. LORTAB [Concomitant]

REACTIONS (1)
  - HEPATITIS [None]
